FAERS Safety Report 12396446 (Version 1)
Quarter: 2016Q2

REPORT INFORMATION
  Report Type: Spontaneous
  Country: US (occurrence: None)
  Receive Date: 20160523
  Receipt Date: 20160523
  Transmission Date: 20160815
  Serious: Yes (Life-Threatening)
  Sender: FDA-Public Use
  Company Number: None

PATIENT
  Age: 66 Year
  Sex: Female
  Weight: 67 kg

DRUGS (1)
  1. PAZOPANIB, 200 MG [Suspect]
     Active Substance: PAZOPANIB
     Indication: RENAL CELL CARCINOMA
     Route: 048

REACTIONS (3)
  - Dehydration [None]
  - Tachycardia [None]
  - Hepatotoxicity [None]

NARRATIVE: CASE EVENT DATE: 20151028
